FAERS Safety Report 17798775 (Version 1)
Quarter: 2020Q2

REPORT INFORMATION
  Report Type: Spontaneous
  Country: US (occurrence: US)
  Receive Date: 20200518
  Receipt Date: 20200518
  Transmission Date: 20200714
  Serious: Yes (Other)
  Sender: FDA-Public Use
  Company Number: None

PATIENT
  Age: 70 Year
  Sex: Female
  Weight: 65.25 kg

DRUGS (7)
  1. SUDAFED [Concomitant]
     Active Substance: PSEUDOEPHEDRINE HYDROCHLORIDE
  2. AMOXICILLIN. [Concomitant]
     Active Substance: AMOXICILLIN
  3. FLUOROURACIL 5% CREAM [Concomitant]
     Active Substance: FLUOROURACIL
  4. ZYRTEC [Concomitant]
     Active Substance: CETIRIZINE HYDROCHLORIDE
  5. AMOXICILLIN. [Suspect]
     Active Substance: AMOXICILLIN
     Indication: SINUSITIS
     Dosage: ?          QUANTITY:1 TABLET(S);?
     Route: 048
  6. PEPCID AD [Concomitant]
  7. MOTRIN [Concomitant]
     Active Substance: IBUPROFEN

REACTIONS (4)
  - Wrong technique in product usage process [None]
  - Choking [None]
  - Product size issue [None]
  - Cough [None]

NARRATIVE: CASE EVENT DATE: 20200515
